FAERS Safety Report 23029225 (Version 4)
Quarter: 2024Q1

REPORT INFORMATION
  Report Type: Report from Study
  Country: BR (occurrence: BR)
  Receive Date: 20231004
  Receipt Date: 20240102
  Transmission Date: 20240409
  Serious: Yes (Other)
  Sender: FDA-Public Use
  Company Number: BR-BAYER-2023A133993

PATIENT
  Age: 60 Year
  Sex: Male

DRUGS (18)
  1. NEXAVAR [Suspect]
     Active Substance: SORAFENIB
     Indication: Hepatocellular carcinoma
     Dosage: 200 MG, QD
     Dates: start: 20230404, end: 20230417
  2. NEXAVAR [Suspect]
     Active Substance: SORAFENIB
     Indication: Hepatocellular carcinoma
     Dosage: 400 MG, QD
     Dates: start: 20230524
  3. TACROLIMUS [Concomitant]
     Active Substance: TACROLIMUS
     Indication: Transplant
     Dosage: 1 TABLET A DAY
  4. EVEROLIMUS [Concomitant]
     Active Substance: EVEROLIMUS
     Indication: Transplant
     Dosage: 2 TABLETS A DAY
  5. LEVOFLOXACIN [Concomitant]
     Active Substance: LEVOFLOXACIN
     Indication: Tuberculosis
     Dosage: 1 TABLET (ONE EACH ON MONDAY, WEDNESDAY AND FRIDAY)
  6. ETHAMBUTOL HYDROCHLORIDE [Concomitant]
     Active Substance: ETHAMBUTOL HYDROCHLORIDE
     Indication: Tuberculosis
     Dosage: TAKE 3 TABLETS (MONDAY, WEDNESDAY AND FRIDAY)
  7. ETHAMBUTOL HYDROCHLORIDE [Concomitant]
     Active Substance: ETHAMBUTOL HYDROCHLORIDE
     Indication: Tuberculosis
  8. OMEPRAZOLE [Concomitant]
     Active Substance: OMEPRAZOLE
     Dosage: 2 CAPSULES A DAY, ONE IN THE MORNING ON AN EMPTY STOMACH AND THE OTHER AT NIGHT
  9. OMEPRAZOLE [Concomitant]
     Active Substance: OMEPRAZOLE
     Dosage: UNK
  10. OMEPRAZOLE [Concomitant]
     Active Substance: OMEPRAZOLE
     Dosage: TAKES 2 CAPSULES A DAY, ONE IN THE MORNING ON AN EMPTY STOMACH AND THE OTHER AT NIGHT
  11. DIPYRONE [Concomitant]
     Active Substance: DIPYRONE
     Indication: Pain
     Dosage: UNK
  12. TRAMADOL [Concomitant]
     Active Substance: TRAMADOL\TRAMADOL HYDROCHLORIDE
     Indication: Pain
     Dosage: UNK
  13. NPH INSULIN [Concomitant]
     Active Substance: INSULIN BEEF
     Indication: Diabetes mellitus
     Dosage: APPLIES 14 UNITS IN THE MORNING AND 4 UNITS IN THE EVENING
  14. NPH INSULIN [Concomitant]
     Active Substance: INSULIN BEEF
     Indication: Diabetes mellitus
     Dosage: APPLIES 14 UNITS IN THE MORNING AND 4 UNITS AT NIGHT
  15. INSULIN NOS [Concomitant]
     Active Substance: INSULIN NOS
     Indication: Diabetes mellitus
     Dosage: APPLIES 16 UNITS IN THE MORNING AND 12 UNITS IN THE EVENING
  16. INSULIN NOS [Concomitant]
     Active Substance: INSULIN NOS
     Indication: Diabetes mellitus
     Dosage: APPLIES 16 UNITS IN THE MORNING AND 12 UNITS AT NIGHT
  17. BUTYLSCOPOLAMINE BROMIDE\METAMIZOLE SODIUM [Concomitant]
     Active Substance: BUTYLSCOPOLAMINE BROMIDE\METAMIZOLE SODIUM
     Indication: Nephrolithiasis
     Dosage: UNK
  18. ONDANSETRON HYDROCHLORIDE [Concomitant]
     Active Substance: ONDANSETRON HYDROCHLORIDE
     Indication: Nausea
     Dosage: 3 TABLETS A DAY
     Dates: start: 202304

REACTIONS (15)
  - Cachexia [None]
  - Peripheral swelling [Not Recovered/Not Resolved]
  - Weight decreased [None]
  - Gastrointestinal disorder [Not Recovered/Not Resolved]
  - Skin fissures [Recovered/Resolved]
  - Skin exfoliation [Recovering/Resolving]
  - Paraesthesia [Recovering/Resolving]
  - Pruritus [Recovering/Resolving]
  - Burning sensation [Recovering/Resolving]
  - Pruritus [Not Recovered/Not Resolved]
  - Paraesthesia [Recovering/Resolving]
  - Skin exfoliation [Not Recovered/Not Resolved]
  - Nausea [Not Recovered/Not Resolved]
  - Vomiting [Not Recovered/Not Resolved]
  - Off label use [Not Recovered/Not Resolved]

NARRATIVE: CASE EVENT DATE: 20230404
